FAERS Safety Report 9580918 (Version 1)
Quarter: 2013Q4

REPORT INFORMATION
  Report Type: Spontaneous
  Country: US (occurrence: US)
  Receive Date: 20131002
  Receipt Date: 20131002
  Transmission Date: 20140711
  Serious: Yes (Other)
  Sender: FDA-Public Use
  Company Number: US-PFIZER INC-2013277127

PATIENT
  Age: 54 Year
  Sex: Female
  Weight: 65.76 kg

DRUGS (18)
  1. XELJANZ [Suspect]
     Indication: RHEUMATOID ARTHRITIS
     Dosage: 5 MG, 2X/DAY (ONE TABLET)
     Route: 048
  2. DILAUDID [Concomitant]
     Dosage: 2 MG, UNK
  3. MELATONIN [Concomitant]
     Dosage: 10 MG, UNK
  4. TRAZODONE [Concomitant]
     Dosage: 150 MG, UNK
  5. TOPAMAX [Concomitant]
     Dosage: 100 MG, UNK
  6. FLEXERIL [Concomitant]
     Dosage: 10 MG, UNK
  7. MECLIZINE [Concomitant]
     Dosage: 12.5 MG, UNK
  8. CYMBALTA [Concomitant]
     Dosage: 30 MG, UNK
  9. PROBIOTICS [Concomitant]
     Dosage: UNK
  10. SHARK CARTILAGE [Concomitant]
     Dosage: 740 MG, UNK
  11. NIACIN [Concomitant]
     Dosage: 125 MG, UNK
  12. FLAX SEED OIL [Concomitant]
     Dosage: UNK
  13. FISH OIL [Concomitant]
     Dosage: UNK
  14. VITAMIN C [Concomitant]
     Dosage: 500 MG, UNK
  15. RITALIN [Concomitant]
     Dosage: 20 MG, UNK
  16. ZOMIG [Concomitant]
     Dosage: 2.5 MG, UNK
  17. SUMATRIPTAN [Concomitant]
     Dosage: 50 MG, UNK
  18. VITAMIN D3 [Concomitant]
     Dosage: 10000 DF, UNK

REACTIONS (7)
  - Urinary tract infection [Recovering/Resolving]
  - Liver function test abnormal [Unknown]
  - Red blood cell sedimentation rate increased [Unknown]
  - Arthritis [Unknown]
  - Dysphonia [Unknown]
  - Dry mouth [Unknown]
  - Alopecia [Unknown]
